FAERS Safety Report 7912070-4 (Version None)
Quarter: 2011Q4

REPORT INFORMATION
  Report Type: 
  Country: None (occurrence: None)
  Receive Date: 20111114
  Receipt Date: 20111103
  Transmission Date: 20120403
  Serious: Yes (Hospitalization)
  Sender: FDA-Public Use
  Company Number: US-JNJFOC-20111012234

PATIENT
  Sex: Male
  Weight: 12.2 kg

DRUGS (4)
  1. INFLIXIMAB, RECOMBINANT [Suspect]
     Route: 042
     Dates: start: 20110324
  2. BUDESONIDE [Concomitant]
  3. AZITHROMYCIN [Suspect]
     Indication: SINUSITIS
     Dates: start: 20111001
  4. INFLIXIMAB, RECOMBINANT [Suspect]
     Indication: CROHN'S DISEASE
     Route: 042
     Dates: start: 20111028

REACTIONS (1)
  - CROHN'S DISEASE [None]
